FAERS Safety Report 7719352-X (Version None)
Quarter: 2011Q3

REPORT INFORMATION
  Report Type: 
  Country: None (occurrence: None)
  Receive Date: 20110830
  Receipt Date: 20110822
  Transmission Date: 20111222
  Serious: Yes (Hospitalization)
  Sender: FDA-Public Use
  Company Number: FR-JNJFOC-20110810495

PATIENT
  Age: 42 Year
  Sex: Male

DRUGS (2)
  1. REMICADE [Suspect]
     Indication: ANKYLOSING SPONDYLITIS
     Route: 042
     Dates: start: 20100827, end: 20100827
  2. REMICADE [Suspect]
     Route: 042
     Dates: start: 20100729

REACTIONS (5)
  - OXYGEN SATURATION DECREASED [None]
  - HYPOTENSION [None]
  - INFUSION RELATED REACTION [None]
  - ABSCESS [None]
  - URTICARIA [None]
